FAERS Safety Report 7408036-3 (Version None)
Quarter: 2011Q2

REPORT INFORMATION
  Report Type: 
  Country: None (occurrence: None)
  Receive Date: 20110412
  Receipt Date: 20110329
  Transmission Date: 20111010
  Serious: Yes (Other)
  Sender: FDA-Public Use
  Company Number: CA-JNJFOC-20110312704

PATIENT
  Sex: Male
  Weight: 50.5 kg

DRUGS (5)
  1. REMICADE [Suspect]
     Indication: CROHN'S DISEASE
     Route: 042
  2. IMURAN [Concomitant]
     Route: 065
  3. FLOVENT [Concomitant]
     Route: 065
  4. VENTOLIN [Concomitant]
     Route: 065
  5. OXEZE [Concomitant]
     Route: 065

REACTIONS (1)
  - DENTAL OPERATION [None]
